FAERS Safety Report 4443445-6 (Version None)
Quarter: 2004Q3

REPORT INFORMATION
  Report Type: 
  Country: None (occurrence: None)
  Receive Date: 20040901
  Receipt Date: 20040823
  Transmission Date: 20050211
  Serious: Yes (Other)
  Sender: FDA-Public Use
  Company Number: US-JNJFOC-20040807956

PATIENT
  Age: 82 Year
  Sex: Female

DRUGS (6)
  1. TYLENOL ARTHRITIS PAIN (ACETAMINOPHEN) GELTABS [Suspect]
     Indication: ARTHRITIS
     Dosage: SEE IMAGE
     Route: 048
     Dates: start: 20040814, end: 20040821
  2. TYLENOL ARTHRITIS PAIN (ACETAMINOPHEN) GELTABS [Suspect]
     Indication: ARTHRITIS
     Dosage: SEE IMAGE
     Route: 048
     Dates: start: 20040821, end: 20040821
  3. ATENOLOL [Concomitant]
  4. HYDROCHLOROTHIAZIDE [Concomitant]
  5. NEXIUM [Concomitant]
  6. CELEBREX [Concomitant]

REACTIONS (2)
  - DYSPNOEA [None]
  - SENSATION OF FOREIGN BODY [None]
